FAERS Safety Report 10832154 (Version 1)
Quarter: 2015Q1

REPORT INFORMATION
  Report Type: Spontaneous
  Country: US (occurrence: US)
  Receive Date: 20150219
  Receipt Date: 20150219
  Transmission Date: 20150721
  Serious: Yes (Hospitalization, Other)
  Sender: FDA-Public Use
  Company Number: US-RECKITT BENCKISER PHARMACEUTICAL, INC-RB-62403-2014

PATIENT

DRUGS (1)
  1. SUBOXONE [Suspect]
     Active Substance: BUPRENORPHINE HYDROCHLORIDE\NALOXONE HYDROCHLORIDE
     Indication: ACCIDENTAL EXPOSURE TO PRODUCT BY CHILD
     Dosage: THE PATIENT SWALLOWED HALF OF AN 8 MG TABLET
     Route: 065
     Dates: start: 20131228, end: 20131228

REACTIONS (2)
  - Accidental exposure to product by child [Recovered/Resolved]
  - Vomiting [Unknown]

NARRATIVE: CASE EVENT DATE: 20131228
